FAERS Safety Report 15880009 (Version 2)
Quarter: 2019Q1

REPORT INFORMATION
  Report Type: Spontaneous
  Country: DE (occurrence: DE)
  Receive Date: 20190128
  Receipt Date: 20190326
  Transmission Date: 20190417
  Serious: Yes (Hospitalization, Other)
  Sender: FDA-Public Use
  Company Number: PHHY2019DE017318

PATIENT
  Age: 62 Year
  Sex: Female
  Weight: 45 kg

DRUGS (5)
  1. LEVOFLOXACIN HEXAL [Suspect]
     Active Substance: LEVOFLOXACIN
     Indication: URINARY TRACT INFECTION
     Dosage: 500 MG, QD
     Route: 065
     Dates: start: 20181201
  2. RAMILICH [Concomitant]
     Active Substance: RAMIPRIL
     Indication: PRODUCT USED FOR UNKNOWN INDICATION
     Dosage: UNK
     Route: 065
  3. PANTOPRAZOL RATIOPHARM [Concomitant]
     Active Substance: PANTOPRAZOLE SODIUM
     Indication: PRODUCT USED FOR UNKNOWN INDICATION
     Dosage: UNK
     Route: 065
  4. LEVOFLOXACIN HEXAL [Suspect]
     Active Substance: LEVOFLOXACIN
     Indication: DYSURIA
  5. LEVOFLOXACIN HEXAL [Suspect]
     Active Substance: LEVOFLOXACIN
     Indication: GENITAL BURNING SENSATION
     Dosage: 0.5 DF, QD
     Route: 065
     Dates: start: 20181204, end: 20181204

REACTIONS (16)
  - Polyneuropathy [Recovering/Resolving]
  - Muscular weakness [Unknown]
  - Angina pectoris [Recovering/Resolving]
  - Mitochondrial toxicity [Recovering/Resolving]
  - Bundle branch block left [Unknown]
  - Dizziness [Recovering/Resolving]
  - Cardiac disorder [Recovering/Resolving]
  - Disturbance in attention [Unknown]
  - Electrocardiogram QT prolonged [Not Recovered/Not Resolved]
  - Musculoskeletal chest pain [Not Recovered/Not Resolved]
  - Head discomfort [Unknown]
  - Tremor [Unknown]
  - Pain [Unknown]
  - Asthenia [Unknown]
  - Feeling abnormal [Unknown]
  - Tinnitus [Unknown]

NARRATIVE: CASE EVENT DATE: 20181201
